FAERS Safety Report 8987802 (Version 1)
Quarter: 2012Q4

REPORT INFORMATION
  Report Type: Report from Study
  Country: CA (occurrence: CA)
  Receive Date: 20121227
  Receipt Date: 20121227
  Transmission Date: 20130627
  Serious: Yes (Hospitalization, Other)
  Sender: FDA-Public Use
  Company Number: CA-GLAXOSMITHKLINE-Z0007893E

PATIENT
  Age: 69 Year
  Sex: Female
  Weight: 73 kg

DRUGS (4)
  1. OFATUMUMAB [Suspect]
     Indication: CHRONIC LYMPHOCYTIC LEUKAEMIA
     Route: 042
     Dates: start: 20100928
  2. FLUDARABINE [Suspect]
     Indication: CHRONIC LYMPHOCYTIC LEUKAEMIA
     Route: 042
     Dates: start: 20100929
  3. CYCLOPHOSPHAMIDE [Suspect]
     Indication: CHRONIC LYMPHOCYTIC LEUKAEMIA
     Route: 042
     Dates: start: 20100929
  4. ACETAMINOPHEN [Concomitant]
     Indication: HEADACHE
     Dosage: 650MG Six times per day
     Route: 048
     Dates: start: 20121129, end: 20121130

REACTIONS (1)
  - Salmonella sepsis [Recovered/Resolved]
